FAERS Safety Report 18793537 (Version 1)
Quarter: 2021Q1

REPORT INFORMATION
  Report Type: Other
  Country: US (occurrence: US)
  Receive Date: 20210127
  Receipt Date: 20210127
  Transmission Date: 20210419
  Serious: Yes (Life-Threatening, Hospitalization, Congenital Anomaly)
  Sender: FDA-Public Use
  Company Number: US-APTAPHARMA INC.-2105886

PATIENT
  Sex: Female
  Weight: 1.19 kg

DRUGS (5)
  1. BETAMETHASONE. [Suspect]
     Active Substance: BETAMETHASONE
     Route: 064
  2. ASPIRIN. [Suspect]
     Active Substance: ASPIRIN
     Route: 064
  3. IBUPROFEN. [Suspect]
     Active Substance: IBUPROFEN
     Indication: FOETAL EXPOSURE DURING PREGNANCY
     Route: 064
  4. ACETAMINOPHEN. [Suspect]
     Active Substance: ACETAMINOPHEN
     Route: 064
  5. CITALOPRAM [Suspect]
     Active Substance: CITALOPRAM HYDROBROMIDE
     Route: 064

REACTIONS (17)
  - Heart disease congenital [Recovering/Resolving]
  - Umbilical artery vascular resistance increased [Recovered/Resolved]
  - Ventricular septal defect [Recovered/Resolved]
  - Foetal growth restriction [Recovered/Resolved]
  - Ductus arteriosus premature closure [Recovered/Resolved]
  - Neonatal respiratory failure [Recovered/Resolved]
  - Premature baby [Unknown]
  - Foetal placental thrombosis [Recovered/Resolved]
  - Neonatal hypoxia [Recovered/Resolved]
  - Diastolic dysfunction [Recovered/Resolved]
  - Systolic dysfunction [Recovered/Resolved]
  - Pulmonary hypertension [Recovered/Resolved]
  - Neonatal sinus tachycardia [Recovered/Resolved]
  - Cardiomegaly [Recovered/Resolved]
  - Cardiac hypertrophy [Recovered/Resolved]
  - Atrial septal defect [Recovered/Resolved]
  - Tricuspid valve incompetence [Recovered/Resolved]
